FAERS Safety Report 11803846 (Version 2)
Quarter: 2015Q4

REPORT INFORMATION
  Report Type: Report from Study
  Country: CO (occurrence: CO)
  Receive Date: 20151204
  Receipt Date: 20151228
  Transmission Date: 20160305
  Serious: Yes (Death)
  Sender: FDA-Public Use
  Company Number: CO-ABBVIE-15P-036-1513893-00

PATIENT
  Age: 75 Year
  Sex: Female

DRUGS (1)
  1. ZEMPLAR [Suspect]
     Active Substance: PARICALCITOL
     Indication: HYPERPARATHYROIDISM SECONDARY
     Route: 048
     Dates: start: 20150917, end: 20151117

REACTIONS (2)
  - Cardiac disorder [Fatal]
  - Renal disorder [Fatal]

NARRATIVE: CASE EVENT DATE: 20151201
